FAERS Safety Report 4317892-7 (Version None)
Quarter: 2004Q1

REPORT INFORMATION
  Report Type: 
  Country: None (occurrence: None)
  Receive Date: 20040316
  Receipt Date: 20031105
  Transmission Date: 20041129
  Serious: Yes (Hospitalization)
  Sender: FDA-Public Use
  Company Number: GB-ROCHE-350887

PATIENT
  Age: 61 Year
  Sex: Male
  Weight: 75.3 kg

DRUGS (6)
  1. CAPECITABINE [Suspect]
     Indication: PANCREATIC CARCINOMA
     Dosage: ADMINISTERED FOR TWO WEEKS FOLLOWED BY ONE WEEKS REST. ACTUAL DOSE: 3300 MG
     Route: 048
     Dates: start: 20031024, end: 20031031
  2. GEMCITABINE [Suspect]
     Indication: PANCREATIC CARCINOMA
     Dosage: DOSE GIVEN AS INTRAVENOUS INFUSION OVER 30 MIN. ADMINISTERED ON DAY ONE AND DAY EIGHT. ACTUAL DOSE +
     Route: 042
     Dates: start: 20031024, end: 20031024
  3. METFORMIN HCL [Concomitant]
  4. GLYBURIDE [Concomitant]
  5. SOLPADOL [Concomitant]
  6. CREON [Concomitant]

REACTIONS (5)
  - ADVERSE DRUG REACTION [None]
  - BODY TEMPERATURE INCREASED [None]
  - CHILLS [None]
  - INFLUENZA LIKE ILLNESS [None]
  - INTESTINAL OBSTRUCTION [None]
